FAERS Safety Report 18000163 (Version 1)
Quarter: 2020Q3

REPORT INFORMATION
  Report Type: Spontaneous
  Country: JP (occurrence: JP)
  Receive Date: 20200709
  Receipt Date: 20200709
  Transmission Date: 20201103
  Serious: Yes (Other)
  Sender: FDA-Public Use
  Company Number: JP-AMGEN-JPNSP2020034048

PATIENT
  Age: 34 Year
  Sex: Female

DRUGS (11)
  1. DOCETAXEL. [Concomitant]
     Active Substance: DOCETAXEL
     Dosage: 130 MILLIGRAM
     Route: 041
     Dates: start: 20200318, end: 20200318
  2. DECADRON (DEXAMETHASONE SODIUM PHOSPHATE) [Concomitant]
     Active Substance: DEXAMETHASONE SODIUM PHOSPHATE
     Dosage: 6.6 MILLIGRAM, Q3WK (A TOTAL OF 4 DOSES)
     Route: 041
     Dates: start: 20200115, end: 20200318
  3. EPIRUBICIN HYDROCHLORIDE. [Concomitant]
     Active Substance: EPIRUBICIN HYDROCHLORIDE
     Indication: TRIPLE NEGATIVE BREAST CANCER
     Dosage: 160 MILLIGRAM, Q3WK (A TOTAL OF 4 DOSES)
     Route: 041
     Dates: start: 20191023, end: 20191225
  4. ENDOXAN [CYCLOPHOSPHAMIDE] [Concomitant]
     Active Substance: CYCLOPHOSPHAMIDE
     Indication: TRIPLE NEGATIVE BREAST CANCER
     Dosage: 1000 MILLIGRAM, Q3WK (A TOTAL OF 4 DOSES)
     Route: 041
     Dates: start: 20191023, end: 20191225
  5. GRANISETRON [GRANISETRON HYDROCHLORIDE] [Concomitant]
     Active Substance: GRANISETRON HYDROCHLORIDE
     Indication: TRIPLE NEGATIVE BREAST CANCER
     Dosage: 3 MILLIGRAM, Q3WK (A TOTAL OF 4 DOSES)
     Route: 041
     Dates: start: 20200115, end: 20200318
  6. DOCETAXEL. [Concomitant]
     Active Substance: DOCETAXEL
     Dosage: 130 MILLIGRAM
     Route: 041
     Dates: start: 20200213, end: 20200213
  7. ALOXI [Concomitant]
     Active Substance: PALONOSETRON HYDROCHLORIDE
     Indication: TRIPLE NEGATIVE BREAST CANCER
     Dosage: 0.75 MILLIGRAM, Q3WK ( A TOTAL OF 4 DOSES)
     Route: 041
     Dates: start: 20191023, end: 20191225
  8. DOCETAXEL. [Concomitant]
     Active Substance: DOCETAXEL
     Indication: TRIPLE NEGATIVE BREAST CANCER
     Dosage: 130 MILLIGRAM
     Route: 041
     Dates: start: 20200115, end: 20200115
  9. G?LASTA [Suspect]
     Active Substance: PEGFILGRASTIM
     Indication: COLONY STIMULATING FACTOR THERAPY
     Dosage: 3.6 MILLIGRAM, Q3WK (A TOTAL OF 4 DOSES )
     Route: 058
     Dates: start: 20191025, end: 20200207
  10. DOCETAXEL. [Concomitant]
     Active Substance: DOCETAXEL
     Dosage: 130 MILLIGRAM
     Route: 041
     Dates: start: 20200226, end: 20200226
  11. DECADRON (DEXAMETHASONE SODIUM PHOSPHATE) [Concomitant]
     Active Substance: DEXAMETHASONE SODIUM PHOSPHATE
     Indication: TRIPLE NEGATIVE BREAST CANCER
     Dosage: 9.9 MILLIGRAM, Q3WK (A TOTAL OF 4 DOSES)
     Route: 041
     Dates: start: 20191023, end: 20191225

REACTIONS (1)
  - Pyrexia [Recovered/Resolved]

NARRATIVE: CASE EVENT DATE: 20191216
